FAERS Safety Report 9662735 (Version 2)
Quarter: 2013Q4

REPORT INFORMATION
  Report Type: Spontaneous
  Country: US (occurrence: US)
  Receive Date: 20131031
  Receipt Date: 20131031
  Transmission Date: 20140711
  Serious: No
  Sender: FDA-Public Use
  Company Number: US-PURDUE-USA-2011-0063179

PATIENT
  Sex: Female

DRUGS (3)
  1. OXYCONTIN (NDA 22-272) [Suspect]
     Indication: ARTHRITIS
     Dosage: 10 MG, Q8H
     Route: 048
  2. OXYCONTIN (NDA 22-272) [Suspect]
     Dosage: 15 MG, Q12H
  3. PERCOCET                           /00867901/ [Concomitant]
     Indication: BREAKTHROUGH PAIN
     Dosage: 1 TABLET, SEE TEXT
     Route: 048

REACTIONS (4)
  - Decreased activity [Unknown]
  - Pain [Unknown]
  - Somnolence [Not Recovered/Not Resolved]
  - Inadequate analgesia [Not Recovered/Not Resolved]
